FAERS Safety Report 13072026 (Version 2)
Quarter: 2017Q1

REPORT INFORMATION
  Report Type: Spontaneous
  Country: JP (occurrence: JP)
  Receive Date: 20161229
  Receipt Date: 20170209
  Transmission Date: 20170428
  Serious: Yes (Death)
  Sender: FDA-Public Use
  Company Number: JP-PFIZER INC-2016514340

PATIENT
  Age: 76 Year
  Sex: Female
  Weight: 86 kg

DRUGS (8)
  1. BISONO [Concomitant]
     Active Substance: BISOPROLOL
     Indication: ATRIAL TACHYCARDIA
     Dosage: 8 MG, 1X/DAY
     Route: 062
     Dates: start: 20161015, end: 20161103
  2. ANAEMETRO [Concomitant]
     Active Substance: METRONIDAZOLE
     Indication: SEPSIS
     Dosage: 500 MG, 4X/DAY
     Route: 042
     Dates: start: 20160927, end: 20161103
  3. ZYVOX [Suspect]
     Active Substance: LINEZOLID
     Indication: CELLULITIS
     Dosage: 600 MG, 2X/DAY
     Route: 041
     Dates: start: 20161027, end: 20161103
  4. VANCOMYCIN [Concomitant]
     Active Substance: VANCOMYCIN
     Indication: SEPSIS
     Dosage: 750 MG, 1X/DAY
     Route: 042
     Dates: start: 20160902, end: 20161021
  5. CRAVIT [Concomitant]
     Active Substance: LEVOFLOXACIN
     Indication: SEPSIS
     Dosage: 500 MG, 1X/DAY
     Route: 042
     Dates: start: 20160927, end: 20161103
  6. OMEPRAZOLE. [Concomitant]
     Active Substance: OMEPRAZOLE
     Indication: PROPHYLAXIS AGAINST GASTROINTESTINAL ULCER
     Dosage: 20 MG, 1X/DAY
     Route: 042
     Dates: start: 20160913, end: 20161102
  7. CUBICIN [Concomitant]
     Active Substance: DAPTOMYCIN
     Indication: SEPSIS
     Dosage: 525 MG, 1X/DAY
     Route: 042
     Dates: start: 20161011, end: 20161017
  8. MEROPENEM. [Concomitant]
     Active Substance: MEROPENEM
     Indication: SEPSIS
     Dosage: 1 G, 2X/DAY
     Route: 042
     Dates: start: 20160912, end: 20160927

REACTIONS (4)
  - Multiple organ dysfunction syndrome [Fatal]
  - Metabolic acidosis [Fatal]
  - Sepsis [Fatal]
  - Disease progression [Fatal]

NARRATIVE: CASE EVENT DATE: 20161101
